FAERS Safety Report 18240456 (Version 1)
Quarter: 2020Q3

REPORT INFORMATION
  Report Type: Spontaneous
  Country: GB (occurrence: GB)
  Receive Date: 20200908
  Receipt Date: 20200908
  Transmission Date: 20201103
  Serious: Yes (Life-Threatening)
  Sender: FDA-Public Use
  Company Number: GB-TEVA-2020-GB-1823559

PATIENT
  Age: 55 Year
  Sex: Female

DRUGS (13)
  1. PARACETAMOL [Concomitant]
     Active Substance: ACETAMINOPHEN
     Dosage: 4 GRAM
  2. WARFARIN [Interacting]
     Active Substance: WARFARIN
     Route: 065
  3. ONDANSETRON [Concomitant]
     Active Substance: ONDANSETRON
     Dosage: 12 MG
  4. FENTANYL. [Concomitant]
     Active Substance: FENTANYL
     Dosage: 100 MCG
     Route: 060
  5. FENTANYL. [Concomitant]
     Active Substance: FENTANYL
     Dosage: DUE 08/01/2020
  6. CREON [Concomitant]
     Active Substance: PANCRELIPASE AMYLASE\PANCRELIPASE LIPASE\PANCRELIPASE PROTEASE
     Dosage: 25000 IU,WITH MEALS.
     Route: 048
  7. CIPROFLOXACIN. [Suspect]
     Active Substance: CIPROFLOXACIN
     Route: 065
  8. PROCHLORPERAZINE. [Concomitant]
     Active Substance: PROCHLORPERAZINE
     Dosage: 3 MG
     Route: 002
  9. LANSOPRAZOLE. [Concomitant]
     Active Substance: LANSOPRAZOLE
     Dosage: 30 MG
  10. PANCREX V [Concomitant]
     Active Substance: PANCRELIPASE
     Dosage: 2 GRAM,1800,2200,0000,0200 ON FEED
  11. FUROSEMIDE. [Concomitant]
     Active Substance: FUROSEMIDE
     Dosage: 40 MILLIGRAM DAILY; EVERY MORNING
  12. AMLODIPINE [Concomitant]
     Active Substance: AMLODIPINE BESYLATE
     Dosage: 5 MG
  13. HUMAN INSULATARD [Concomitant]
     Active Substance: INSULIN HUMAN
     Dosage: 20 IU ,10 UNITS EVERY MORNING AND 10 UNITS AT TEA TIME (FEED).

REACTIONS (2)
  - Drug interaction [Unknown]
  - International normalised ratio increased [Unknown]
